FAERS Safety Report 22336535 (Version 1)
Quarter: 2023Q2

REPORT INFORMATION
  Report Type: Spontaneous
  Country: US (occurrence: US)
  Receive Date: 20230518
  Receipt Date: 20230518
  Transmission Date: 20230721
  Serious: No
  Sender: FDA-Public Use
  Company Number: US-STERISCIENCE B.V.-2022-ST-000430

PATIENT
  Age: 27 Year
  Sex: Female

DRUGS (25)
  1. ONDANSETRON [Suspect]
     Active Substance: ONDANSETRON
     Indication: Prophylaxis of nausea and vomiting
     Dosage: 4 MILLIGRAM
     Route: 042
  2. BUPIVACAINE [Suspect]
     Active Substance: BUPIVACAINE
     Indication: Product used for unknown indication
     Dosage: 1015 MILLILITER
     Route: 008
  3. FAMOTIDINE [Suspect]
     Active Substance: FAMOTIDINE
     Indication: Respiratory disorder prophylaxis
     Dosage: 20 MILLIGRAM
     Route: 042
  4. METOCLOPRAMIDE [Suspect]
     Active Substance: METOCLOPRAMIDE
     Indication: Respiratory disorder prophylaxis
     Dosage: 10 MILLIGRAM
     Route: 042
  5. SODIUM CITRATE [Suspect]
     Active Substance: SODIUM CITRATE
     Indication: Respiratory disorder prophylaxis
     Dosage: 30 MILLILITER
     Route: 048
  6. SCOPOLAMINE [Suspect]
     Active Substance: SCOPOLAMINE
     Indication: Tocolysis
     Dosage: UNK
     Route: 065
  7. INDOMETHACIN [Suspect]
     Active Substance: INDOMETHACIN
     Indication: Tocolysis
     Dosage: 50 MILLIGRAM
  8. INDOMETHACIN [Suspect]
     Active Substance: INDOMETHACIN
     Dosage: 25 MILLIGRAM, Q6H
     Route: 048
  9. PROPOFOL [Suspect]
     Active Substance: PROPOFOL
     Indication: Induction of anaesthesia
     Dosage: UNK
     Route: 065
  10. PROPOFOL [Suspect]
     Active Substance: PROPOFOL
     Indication: General anaesthesia
     Dosage: 75200 MICROGRAM/KILOGRAM/MINUTE
     Route: 065
  11. SUCCINYLCHOLINE [Suspect]
     Active Substance: SUCCINYLCHOLINE
     Indication: Induction of anaesthesia
     Dosage: UNK
     Route: 065
  12. FENTANYL [Suspect]
     Active Substance: FENTANYL
     Indication: Induction of anaesthesia
     Dosage: UNK
     Route: 065
  13. REMIFENTANIL [Suspect]
     Active Substance: REMIFENTANIL
     Indication: General anaesthesia
     Dosage: 0.2 MICROGRAM/KILOGRAM/MINUTE, INFUSION
     Route: 042
  14. PHENYLEPHRINE [Suspect]
     Active Substance: PHENYLEPHRINE HYDROCHLORIDE
     Indication: Blood pressure management
     Dosage: 0.31 MICROGRAM/KILOGRAM/MINUTE, INFUSION
     Route: 042
  15. MAGNESIUM [Suspect]
     Active Substance: MAGNESIUM
     Indication: Tocolysis
     Dosage: 6 GRAM, BOLUS GIVEN OVER 30 MINUTES
     Route: 042
  16. MAGNESIUM [Suspect]
     Active Substance: MAGNESIUM
     Dosage: 2 GRAM PER HOUR, INFUSION
     Route: 042
  17. NITROGLYCERIN [Suspect]
     Active Substance: NITROGLYCERIN
     Indication: Product used for unknown indication
     Dosage: 1 MICROGRAM/KILOGRAM/MINUTE; INFUSION
     Route: 042
  18. NITROGLYCERIN [Suspect]
     Active Substance: NITROGLYCERIN
     Dosage: TITRATED TO A MAXIMUM RATE OF 1.5 MICROGRAM/KILOGRAM/MINUTE
     Route: 042
  19. NITROGLYCERIN [Suspect]
     Active Substance: NITROGLYCERIN
     Dosage: 100 MICROGRAM, SINGLE BOLUS
     Route: 042
  20. ACETAMINOPHEN [Suspect]
     Active Substance: ACETAMINOPHEN
     Indication: Analgesic therapy
     Dosage: 1 GRAM
     Route: 042
  21. ACETAMINOPHEN [Suspect]
     Active Substance: ACETAMINOPHEN
     Dosage: UNK UNK, Q6H
     Route: 048
  22. GLYCOPYRROLATE [Suspect]
     Active Substance: GLYCOPYRROLATE
     Indication: Neuromuscular blockade reversal
     Dosage: UNK
  23. NEOSTIGMINE [Suspect]
     Active Substance: NEOSTIGMINE
     Indication: Neuromuscular blockade reversal
     Dosage: UNK
  24. NIFEDIPINE [Suspect]
     Active Substance: NIFEDIPINE
     Indication: Product used for unknown indication
     Dosage: 10 MILLIGRAM, Q6H
     Route: 048
  25. MORPHINE [Suspect]
     Active Substance: MORPHINE
     Indication: Product used for unknown indication
     Dosage: 3 MILLIGRAM
     Route: 008

REACTIONS (2)
  - Premature delivery [Unknown]
  - Maternal exposure during pregnancy [Unknown]
